FAERS Safety Report 7388615-2 (Version None)
Quarter: 2011Q2

REPORT INFORMATION
  Report Type: 
  Country: None (occurrence: None)
  Receive Date: 20110401
  Receipt Date: 20110321
  Transmission Date: 20111010
  Serious: Yes (Hospitalization, Other)
  Sender: FDA-Public Use
  Company Number: FR-PFIZER INC-2011068068

PATIENT
  Age: 70 Year
  Sex: Male

DRUGS (8)
  1. ELISOR [Concomitant]
     Dosage: 20 MG, 1X/DAY
     Route: 048
  2. CORDARONE [Suspect]
     Dosage: 200 MG, 1X/DAY
     Route: 048
  3. LOVENOX [Suspect]
     Dosage: 7000 IU, 2X/DAY
     Route: 058
     Dates: start: 20101001, end: 20101020
  4. AMLODIPINE BESYLATE [Concomitant]
     Dosage: 5 MG, 1X/DAY
     Route: 048
  5. COUMADIN [Suspect]
     Dosage: 5 MG, 1X/DAY
     Route: 048
     Dates: start: 20101015, end: 20101020
  6. CONTRAMAL [Suspect]
     Dosage: 100 MG, 2X/DAY
     Route: 048
  7. ACETAMINOPHEN [Suspect]
     Dosage: 1000 MG, 4X/DAY
     Route: 048
  8. NICOPATCH [Concomitant]
     Dosage: 21 MG, 1X/DAY

REACTIONS (2)
  - PNEUMONIA ASPIRATION [None]
  - EPISTAXIS [None]
